FAERS Safety Report 8378974-6 (Version None)
Quarter: 2012Q2

REPORT INFORMATION
  Report Type: 
  Country: None (occurrence: None)
  Receive Date: 20120522
  Receipt Date: 20120522
  Transmission Date: 20120825
  Serious: Yes (Other)
  Sender: FDA-Public Use
  Company Number: None

PATIENT
  Sex: Female
  Weight: 76.2043 kg

DRUGS (1)
  1. DALIRESP [Suspect]
     Indication: RESPIRATORY DISORDER
     Dosage: 1 DAILY  3/14 - 3/25
     Dates: start: 20120314, end: 20120325

REACTIONS (7)
  - ABDOMINAL PAIN UPPER [None]
  - PRURITUS [None]
  - DYSURIA [None]
  - DIARRHOEA [None]
  - DRUG INEFFECTIVE [None]
  - INSOMNIA [None]
  - BACK PAIN [None]
